FAERS Safety Report 9328344 (Version 1)
Quarter: 2013Q2

REPORT INFORMATION
  Report Type: Spontaneous
  Country: US (occurrence: US)
  Receive Date: 20130604
  Receipt Date: 20130604
  Transmission Date: 20140414
  Serious: No
  Sender: FDA-Public Use
  Company Number: US-SANOFI-AVENTIS-2012SA067438

PATIENT
  Age: 47 Year
  Sex: Female

DRUGS (4)
  1. LANTUS SOLOSTAR [Suspect]
     Indication: TYPE 2 DIABETES MELLITUS
     Dosage: THERAPY START DATE: ONE YEAR AGO. DOSE:40 UNIT(S)
     Route: 058
     Dates: start: 2011
  2. SOLOSTAR [Suspect]
     Indication: TYPE 2 DIABETES MELLITUS
     Dates: start: 2011
  3. CORTICOSTEROID NOS [Concomitant]
     Indication: NEOPLASM MALIGNANT
     Dates: start: 2011
  4. INSULIN [Concomitant]
     Dates: start: 2011

REACTIONS (2)
  - Visual impairment [Unknown]
  - Blood glucose increased [Unknown]
